FAERS Safety Report 7709585-0 (Version None)
Quarter: 2011Q3

REPORT INFORMATION
  Report Type: 
  Country: None (occurrence: None)
  Receive Date: 20110825
  Receipt Date: 20010627
  Transmission Date: 20111222
  Serious: Yes (Death)
  Sender: FDA-Public Use
  Company Number: US-GLAXOSMITHKLINE-A0349424A

PATIENT
  Age: 60 Year
  Sex: Female
  Weight: 136.05 kg

DRUGS (6)
  1. ZESTRIL [Concomitant]
     Dosage: 10MG TWICE PER DAY
     Route: 048
  2. INSULIN [Concomitant]
     Route: 058
  3. LIPITOR [Concomitant]
     Dosage: 10MG PER DAY
     Route: 048
  4. WELLBUTRIN SR [Concomitant]
     Dosage: 150MG PER DAY
     Route: 048
  5. DYAZIDE [Concomitant]
     Dosage: 25MG PER DAY
     Route: 048
  6. AVANDIA [Suspect]
     Indication: DIABETES MELLITUS
     Dosage: 4MG TWICE PER DAY
     Route: 048
     Dates: start: 20000620

REACTIONS (4)
  - WEIGHT INCREASED [None]
  - DYSPNOEA [None]
  - MYOCARDIAL INFARCTION [None]
  - OEDEMA [None]
